FAERS Safety Report 11055167 (Version 1)
Quarter: 2015Q2

REPORT INFORMATION
  Report Type: Spontaneous
  Country: US (occurrence: None)
  Receive Date: 20150421
  Receipt Date: 20150421
  Transmission Date: 20150821
  Serious: Yes (Life-Threatening)
  Sender: FDA-Public Use
  Company Number: None

PATIENT
  Age: 47 Year
  Sex: Female
  Weight: 97.7 kg

DRUGS (1)
  1. IOPAMIDOL [Suspect]
     Active Substance: IOPAMIDOL
     Indication: ANGIOGRAM
     Route: 042
     Dates: start: 20150303, end: 20150303

REACTIONS (6)
  - Periorbital oedema [None]
  - Anaphylactic reaction [None]
  - Refusal of treatment by patient [None]
  - Dyspnoea [None]
  - Paraesthesia [None]
  - Lacrimation increased [None]

NARRATIVE: CASE EVENT DATE: 20150303
